FAERS Safety Report 11400292 (Version 1)
Quarter: 2015Q3

REPORT INFORMATION
  Report Type: Spontaneous
  Country: PL (occurrence: PL)
  Receive Date: 20150820
  Receipt Date: 20150820
  Transmission Date: 20151125
  Serious: Yes (Hospitalization, Other)
  Sender: FDA-Public Use
  Company Number: PL-APOTEX-2015AP011549

PATIENT
  Age: 29 Year
  Sex: Female

DRUGS (5)
  1. LACOSAMIDE [Suspect]
     Active Substance: LACOSAMIDE
     Indication: EPILEPSY
     Dosage: 300 MG, QD
     Route: 065
     Dates: start: 201011, end: 201106
  2. TOPIRAMATE. [Suspect]
     Active Substance: TOPIRAMATE
     Dosage: 100 MG, QD
     Route: 065
  3. LACOSAMIDE [Suspect]
     Active Substance: LACOSAMIDE
     Dosage: 400 MG, QD
     Route: 065
     Dates: start: 201111
  4. TOPIRAMATE. [Suspect]
     Active Substance: TOPIRAMATE
     Indication: EPILEPSY
     Dosage: 200 MG, QD
     Route: 065
     Dates: end: 2011
  5. LACOSAMIDE [Suspect]
     Active Substance: LACOSAMIDE
     Dosage: 350 MG, QD
     Dates: start: 201106, end: 201111

REACTIONS (7)
  - Generalised tonic-clonic seizure [Recovering/Resolving]
  - Dizziness [Unknown]
  - Drug ineffective [Recovering/Resolving]
  - Hypoaesthesia [Unknown]
  - Treatment noncompliance [Unknown]
  - Depressed mood [Unknown]
  - Drug tolerance decreased [Unknown]
